FAERS Safety Report 8439363-9 (Version None)
Quarter: 2012Q2

REPORT INFORMATION
  Report Type: 
  Country: None (occurrence: None)
  Receive Date: 20120615
  Receipt Date: 20120612
  Transmission Date: 20120825
  Serious: Yes (Disabling, Other)
  Sender: FDA-Public Use
  Company Number: PHHY2012FR050998

PATIENT
  Sex: Female
  Weight: 94 kg

DRUGS (5)
  1. ZOLEDRONOC ACID [Suspect]
     Indication: OSTEOPOROSIS
     Dosage: 5 MG, UNK
     Route: 042
     Dates: start: 20120607
  2. VALSARTAN  AND HYDROCHLOROTHIAZIDE [Concomitant]
     Dosage: 160/25 MG QD
  3. ASPIRIN [Concomitant]
     Dosage: 1 DF PER DAY
  4. FENOFIBRATE [Concomitant]
     Dosage: 1 DF PER DAY
  5. DILTIAZEM HCL [Concomitant]
     Dosage: 1 DF PER DAY

REACTIONS (6)
  - NAUSEA [None]
  - HEADACHE [None]
  - VIRAL INFECTION [None]
  - ABDOMINAL PAIN [None]
  - PYREXIA [None]
  - MYALGIA [None]
